FAERS Safety Report 14191858 (Version 2)
Quarter: 2018Q1

REPORT INFORMATION
  Report Type: Report from Study
  Country: US (occurrence: US)
  Receive Date: 20171115
  Receipt Date: 20180207
  Transmission Date: 20180508
  Serious: Yes (Hospitalization)
  Sender: FDA-Public Use
  Company Number: US-ACTELION-A-US2017-160242

PATIENT
  Age: 31 Year
  Sex: Female

DRUGS (14)
  1. DIGOXIN. [Concomitant]
     Active Substance: DIGOXIN
  2. OPSUMIT [Suspect]
     Active Substance: MACITENTAN
     Dosage: 10 MG, QD
     Route: 048
  3. ESCITALOPRAM [Concomitant]
     Active Substance: ESCITALOPRAM OXALATE
  4. OPSUMIT [Suspect]
     Active Substance: MACITENTAN
     Indication: PULMONARY ARTERIAL HYPERTENSION
     Dosage: 10 MG, QD
     Route: 048
     Dates: start: 20170223
  5. VITAMIN D [Concomitant]
     Active Substance: CHOLECALCIFEROL
  6. QUETIAPINE. [Concomitant]
     Active Substance: QUETIAPINE
  7. CLONIDINE. [Concomitant]
     Active Substance: CLONIDINE
  8. XARELTO [Concomitant]
     Active Substance: RIVAROXABAN
  9. BUSPIRONE [Concomitant]
     Active Substance: BUSPIRONE HYDROCHLORIDE
  10. LEXAPRO [Concomitant]
     Active Substance: ESCITALOPRAM OXALATE
  11. ENOXAPARIN [Concomitant]
     Active Substance: ENOXAPARIN
  12. TORSEMIDE. [Concomitant]
     Active Substance: TORSEMIDE
  13. TESTOSTERONE. [Concomitant]
     Active Substance: TESTOSTERONE
  14. WARFARIN [Concomitant]
     Active Substance: WARFARIN

REACTIONS (4)
  - Oxygen saturation decreased [Not Recovered/Not Resolved]
  - Hypertension [Not Recovered/Not Resolved]
  - Pulmonary oedema [Recovered/Resolved]
  - Drug dose omission [Recovered/Resolved]
